FAERS Safety Report 5335829-9 (Version None)
Quarter: 2007Q2

REPORT INFORMATION
  Report Type: 
  Country: None (occurrence: None)
  Receive Date: 20070320
  Receipt Date: 20050510
  Transmission Date: 20071010
  Serious: Yes (Other)
  Sender: FDA-Public Use
  Company Number: 8010659

PATIENT
  Age: 53 Year
  Sex: Female

DRUGS (35)
  1. LORTAB [Suspect]
  2. TUSSIONEX [Suspect]
  3. EX-LAX ^NOVARTIS^ [Suspect]
  4. NEXIUM [Concomitant]
  5. WELLBUTRIN [Concomitant]
  6. VIOXX [Concomitant]
  7. FOSAMAX [Concomitant]
  8. CLARITIN-D [Concomitant]
  9. MERIDIA [Concomitant]
  10. TOPROL-XL [Concomitant]
  11. CELEXA [Concomitant]
  12. XENICAL [Concomitant]
  13. PRILOSEC [Concomitant]
  14. CARAFATE [Concomitant]
  15. REGLAN [Concomitant]
  16. DEXAMETHASONE TAB [Concomitant]
  17. DEPO-MEDROL [Concomitant]
  18. XYLOCAINE [Concomitant]
  19. BEXTRA [Concomitant]
  20. CORTENEMA [Concomitant]
  21. PROTONIX [Concomitant]
  22. CELESTONE [Concomitant]
  23. ADVIL [Concomitant]
  24. ZITHROMAX [Concomitant]
  25. AVELOX [Concomitant]
  26. IMITREX [Concomitant]
  27. L-CARNITINE [Concomitant]
  28. ALBUTEROL [Concomitant]
  29. ZOLOFT [Concomitant]
  30. MOBIC [Concomitant]
  31. SKELAXIN [Concomitant]
  32. MIRALAX [Concomitant]
  33. TENORETIC 100 [Concomitant]
  34. ULTRACET [Concomitant]
  35. DURATUSS [Concomitant]

REACTIONS (17)
  - DRUG DEPENDENCE [None]
  - EMOTIONAL DISORDER [None]
  - GASTRIC ULCER [None]
  - GASTRITIS [None]
  - HAEMATOCHEZIA [None]
  - HYPERTENSION [None]
  - HYPOACUSIS [None]
  - INJURY [None]
  - INTESTINAL OBSTRUCTION [None]
  - IRRITABLE BOWEL SYNDROME [None]
  - MELANOSIS COLI [None]
  - MIGRAINE [None]
  - OEDEMA PERIPHERAL [None]
  - REFLUX OESOPHAGITIS [None]
  - SCIATICA [None]
  - STRESS [None]
  - WEIGHT INCREASED [None]
